FAERS Safety Report 8839884 (Version 1)
Quarter: 2012Q4

REPORT INFORMATION
  Report Type: 
  Country: ES (occurrence: ES)
  Receive Date: 20121015
  Receipt Date: 20121015
  Transmission Date: 20130627
  Serious: Yes (Other)
  Sender: FDA-Public Use
  Company Number: ES-BRISTOL-MYERS SQUIBB COMPANY-17016007

PATIENT
  Age: 57 Year
  Sex: Male

DRUGS (12)
  1. BARACLUDE TABS 0.5 MG [Suspect]
     Indication: CYTOMEGALOVIRUS INFECTION
     Dosage: Baraclude 0.5mg film coated tabs
Duratn of therapy-52days
     Route: 048
     Dates: start: 20120614
  2. BARACLUDE TABS 0.5 MG [Suspect]
     Indication: LIVER TRANSPLANT
     Dosage: Baraclude 0.5mg film coated tabs
Duratn of therapy-52days
     Route: 048
     Dates: start: 20120614
  3. CICLOSPORIN [Suspect]
     Indication: CYTOMEGALOVIRUS INFECTION
     Dosage: Duratn of therapy:37days
     Route: 048
     Dates: start: 20120629
  4. CICLOSPORIN [Suspect]
     Indication: LIVER TRANSPLANT
     Dosage: Duratn of therapy:37days
     Route: 048
     Dates: start: 20120629
  5. CELLCEPT [Suspect]
     Indication: CYTOMEGALOVIRUS INFECTION
     Dosage: Cellcept 500mg tabs
Duratn of therapy-37days
     Route: 048
     Dates: start: 20120629
  6. CELLCEPT [Suspect]
     Indication: LIVER TRANSPLANT
     Dosage: Cellcept 500mg tabs
Duratn of therapy-37days
     Route: 048
     Dates: start: 20120629
  7. DEZACOR [Suspect]
     Indication: CYTOMEGALOVIRUS INFECTION
     Dosage: Dezacor 5mg tabs
Duratn of therapy-5days
     Route: 048
     Dates: start: 20120731
  8. DEZACOR [Suspect]
     Indication: LIVER TRANSPLANT
     Dosage: Dezacor 5mg tabs
Duratn of therapy-5days
     Route: 048
     Dates: start: 20120731
  9. VALCYTE [Suspect]
     Indication: CYTOMEGALOVIRUS INFECTION
     Dosage: Valcyte 450mg film coated tabs
     Route: 048
     Dates: start: 20120521, end: 20120803
  10. VALCYTE [Suspect]
     Indication: LIVER TRANSPLANT
     Dosage: Valcyte 450mg film coated tabs
     Route: 048
     Dates: start: 20120521, end: 20120803
  11. FANSIDAR [Suspect]
     Indication: CYTOMEGALOVIRUS INFECTION
     Dates: start: 20120614
  12. FANSIDAR [Suspect]
     Indication: LIVER TRANSPLANT
     Dates: start: 20120614

REACTIONS (2)
  - Neutropenia [Recovered/Resolved]
  - Pancytopenia [Recovered/Resolved]
